FAERS Safety Report 8811458 (Version 1)
Quarter: 2012Q4

REPORT INFORMATION
  Report Type: 
  Country: BR (occurrence: BR)
  Receive Date: 20120927
  Receipt Date: 20120927
  Transmission Date: 20130627
  Serious: Yes (Other)
  Sender: FDA-Public Use
  Company Number: BR-PFIZER INC-2012236398

PATIENT
  Age: 72 Year
  Sex: Female

DRUGS (6)
  1. NORVASC [Suspect]
     Indication: BLOOD PRESSURE INCREASED
     Dosage: 5 mg, 1 tablet/day
     Dates: start: 20050629
  2. ARADOIS [Concomitant]
     Indication: BLOOD PRESSURE INCREASED
     Dosage: 50 mg, 2x/day
     Dates: start: 20050629
  3. ATENOL [Concomitant]
     Indication: BLOOD PRESSURE INCREASED
     Dosage: 50 mg, 1x/day
     Dates: start: 20050629
  4. CRESTOR [Concomitant]
     Indication: BLOOD DISORDER
     Dosage: 10 mg, 1x/day
     Dates: start: 20050629
  5. FLUOXETINE [Concomitant]
     Dosage: 50 mg, 1x/day
     Dates: start: 20050629
  6. SONALGIN [Concomitant]
     Indication: VEIN DISORDER
     Dosage: ^325 mg^, 1 capsule or tablet/day
     Dates: start: 20050529

REACTIONS (1)
  - Aneurysm [Unknown]
